FAERS Safety Report 4477310-5 (Version None)
Quarter: 2004Q4

REPORT INFORMATION
  Report Type: 
  Country: None (occurrence: None)
  Receive Date: 20041013
  Receipt Date: 20041004
  Transmission Date: 20050328
  Serious: Yes (Hospitalization)
  Sender: FDA-Public Use
  Company Number: 2004CG01970

PATIENT
  Age: 89 Year
  Sex: Female

DRUGS (4)
  1. MOPRAL [Suspect]
  2. XANAX [Suspect]
  3. EFFEXOR [Suspect]
  4. ZYPREXA [Suspect]

REACTIONS (5)
  - ANAEMIA [None]
  - HYPERCAPNIA [None]
  - MALNUTRITION [None]
  - PNEUMONIA [None]
  - SOMNOLENCE [None]
